FAERS Safety Report 21043757 (Version 1)
Quarter: 2022Q3

REPORT INFORMATION
  Report Type: Spontaneous
  Country: US (occurrence: US)
  Receive Date: 20220705
  Receipt Date: 20220705
  Transmission Date: 20221026
  Serious: No
  Sender: FDA-Public Use
  Company Number: US-SAREPTA THERAPEUTICS INC.-SRP2022-002068

PATIENT
  Age: 35 Year
  Sex: Male
  Weight: 41.27 kg

DRUGS (3)
  1. EXONDYS 51 [Suspect]
     Active Substance: ETEPLIRSEN
     Indication: Duchenne muscular dystrophy
     Dosage: 1350 MILLIGRAM, WEEKLY
     Route: 042
     Dates: start: 20191126, end: 20200318
  2. EXONDYS 51 [Suspect]
     Active Substance: ETEPLIRSEN
     Dosage: 1350 MILLIGRAM WEEKLY
     Route: 042
     Dates: start: 20210422, end: 20220119
  3. EXONDYS 51 [Suspect]
     Active Substance: ETEPLIRSEN
     Dosage: 1350 MILLIGRAM WEEKLY
     Route: 042
     Dates: start: 20220131

REACTIONS (2)
  - Product dose omission issue [Unknown]
  - No adverse event [Unknown]

NARRATIVE: CASE EVENT DATE: 20220125
